FAERS Safety Report 25079993 (Version 1)
Quarter: 2025Q1

REPORT INFORMATION
  Report Type: Report from Study
  Country: KR (occurrence: KR)
  Receive Date: 20250314
  Receipt Date: 20250314
  Transmission Date: 20250409
  Serious: Yes (Death)
  Sender: DAIICHI
  Company Number: KR-DSJP-DS-2025-130245-KR

PATIENT
  Age: 63 Year
  Sex: Female
  Weight: 48 kg

DRUGS (8)
  1. ENHERTU [Suspect]
     Active Substance: FAM-TRASTUZUMAB DERUXTECAN-NXKI
     Indication: HER2 positive breast cancer
     Route: 042
     Dates: start: 20241212, end: 20241212
  2. TEGOPRAZAN [Concomitant]
     Active Substance: TEGOPRAZAN
     Indication: Gastritis prophylaxis
     Dosage: 25 MG, QD
     Route: 048
     Dates: start: 20241204, end: 202412
  3. LIPITOR [Concomitant]
     Active Substance: ATORVASTATIN CALCIUM
     Indication: Dyslipidaemia
     Dosage: 10 MG, QD
     Route: 048
     Dates: start: 20240828, end: 202412
  4. EMPAGLIFLOZIN\METFORMIN HYDROCHLORIDE [Concomitant]
     Active Substance: EMPAGLIFLOZIN\METFORMIN HYDROCHLORIDE
     Indication: Diabetes mellitus
     Dosage: 1 DOSAGE FORM (12.5/1000 MG), QD
     Route: 048
     Dates: start: 20230201, end: 202412
  5. ATIVAN [Concomitant]
     Active Substance: LORAZEPAM
     Indication: Prophylaxis of nausea and vomiting
     Route: 048
     Dates: start: 20241212, end: 202412
  6. AKYNZEO (NETUPITANT\PALONOSETRON HYDROCHLORIDE) [Concomitant]
     Active Substance: NETUPITANT\PALONOSETRON HYDROCHLORIDE
     Indication: Premedication
     Dosage: 1 DOSAGE FORM, QD
     Route: 048
     Dates: start: 20241212, end: 20241212
  7. DEXAMETHASONE [Concomitant]
     Active Substance: DEXAMETHASONE
     Indication: Premedication
     Dosage: 10 MG, QD
     Route: 042
     Dates: start: 20241212, end: 20241212
  8. PHENIL [CHLORPHENAMINE MALEATE] [Concomitant]
     Indication: Premedication
     Dosage: 4 MG, QD
     Route: 042
     Dates: start: 20241212, end: 20241212

REACTIONS (1)
  - Death [Fatal]

NARRATIVE: CASE EVENT DATE: 20241229
